FAERS Safety Report 6381531-4 (Version None)
Quarter: 2009Q3

REPORT INFORMATION
  Report Type: 
  Country: None (occurrence: None)
  Receive Date: 20090925
  Receipt Date: 20090921
  Transmission Date: 20100115
  Serious: Yes (Hospitalization)
  Sender: FDA-Public Use
  Company Number: ADR29462009

PATIENT
  Age: 34 Year
  Sex: Male

DRUGS (9)
  1. CIPROFLOXACIN [Suspect]
     Dosage: ORAL
     Route: 048
  2. AZITHROMYCIN [Suspect]
  3. OMEPRAZOLE [Concomitant]
  4. CLARITHROMYCIN [Concomitant]
  5. COLOMYCIN [Concomitant]
  6. INTERFERON GAMMA [Concomitant]
  7. MEROPENEM [Concomitant]
  8. MINOCYCLINE [Concomitant]
  9. TOBI [Concomitant]

REACTIONS (8)
  - CLOSTRIDIUM DIFFICILE COLITIS [None]
  - DEHYDRATION [None]
  - HYPOTENSION [None]
  - NAUSEA [None]
  - PSEUDOMEMBRANOUS COLITIS [None]
  - PYREXIA [None]
  - TACHYCARDIA [None]
  - TREATMENT FAILURE [None]
